FAERS Safety Report 22171469 (Version 1)
Quarter: 2023Q2

REPORT INFORMATION
  Report Type: Spontaneous
  Country: US (occurrence: US)
  Receive Date: 20230404
  Receipt Date: 20230404
  Transmission Date: 20230721
  Serious: Yes (Hospitalization)
  Sender: FDA-Public Use
  Company Number: US-MYLANLABS-2023M1034903

PATIENT
  Age: 67 Year
  Sex: Female

DRUGS (2)
  1. LITHIUM [Suspect]
     Active Substance: LITHIUM
     Indication: Bipolar I disorder
     Dosage: UNK
     Route: 065
  2. LISINOPRIL [Concomitant]
     Active Substance: LISINOPRIL
     Indication: Product used for unknown indication
     Dosage: UNK
     Route: 065

REACTIONS (7)
  - Sinus node dysfunction [Unknown]
  - Syncope [Unknown]
  - Nodal arrhythmia [Unknown]
  - Retrograde p-waves [Unknown]
  - Sinus bradycardia [Unknown]
  - Electrocardiogram U wave present [Unknown]
  - Left ventricular enlargement [Unknown]
